FAERS Safety Report 9707801 (Version 3)
Quarter: 2014Q1

REPORT INFORMATION
  Report Type: Report from Study
  Country: DK (occurrence: DK)
  Receive Date: 20131125
  Receipt Date: 20140129
  Transmission Date: 20141002
  Serious: Yes (Hospitalization, Other)
  Sender: FDA-Public Use
  Company Number: DK-ASTELLAS-2013US012009

PATIENT
  Age: 74 Year
  Sex: Male
  Weight: 108 kg

DRUGS (5)
  1. ENZALUTAMIDE [Suspect]
     Indication: PROSTATE CANCER
     Dosage: 160 MG, UID/QD
     Route: 048
     Dates: start: 20111229
  2. AMILORID [Concomitant]
     Indication: HYPERTENSION
     Dosage: 5/50 MG, QD
     Route: 048
     Dates: start: 2009
  3. ACETYLSALICYLIC ACID [Concomitant]
     Indication: PROPHYLAXIS
     Dosage: 75 MG, UID/QD
     Route: 048
     Dates: start: 1994, end: 20131108
  4. WARFARIN [Concomitant]
     Indication: ATRIAL FIBRILLATION
     Dosage: AFTER INR (INTERNATIONAL NORMALIZED RATIO)
     Route: 048
     Dates: start: 20120731
  5. ATORVASTAN [Concomitant]
     Indication: HYPERCHOLESTEROLAEMIA
     Dosage: 20.0 MG, UID/QD
     Route: 048
     Dates: start: 20121201

REACTIONS (2)
  - Atrial fibrillation [Recovered/Resolved]
  - Tachycardia [Recovered/Resolved]
